FAERS Safety Report 6712087-1 (Version None)
Quarter: 2010Q2

REPORT INFORMATION
  Report Type: 
  Country: None (occurrence: None)
  Receive Date: 20100505
  Receipt Date: 20100428
  Transmission Date: 20101027
  Serious: Yes (Hospitalization)
  Sender: FDA-Public Use
  Company Number: US-ASTRAZENECA-2010SE19108

PATIENT
  Sex: Male

DRUGS (9)
  1. CRESTOR [Suspect]
     Route: 048
     Dates: start: 20070401
  2. SINGULAIR [Concomitant]
  3. JANUVIA [Concomitant]
  4. METOPROLOL [Concomitant]
  5. VITAMIN D [Concomitant]
  6. DIOVAN HCT [Concomitant]
  7. LOVAZA [Concomitant]
  8. LANSE [Concomitant]
  9. LEVOTHYROXINE [Concomitant]

REACTIONS (2)
  - CARDIAC OPERATION [None]
  - STENT PLACEMENT [None]
